FAERS Safety Report 8250242-2 (Version None)
Quarter: 2012Q1

REPORT INFORMATION
  Report Type: 
  Country: None (occurrence: None)
  Receive Date: 20120328
  Receipt Date: 20120313
  Transmission Date: 20120608
  Serious: Yes (Death, Other)
  Sender: FDA-Public Use
  Company Number: FK201200812

PATIENT
  Age: 49 Year
  Sex: Male

DRUGS (2)
  1. CLADRIBINE [Suspect]
     Indication: HAIRY CELL LEUKAEMIA
     Dosage: 12 MG, INTRAVENOUS (NOT OTHERWISE SPECIFIED)
     Route: 042
  2. GRANULOCYTE COLONY-STIMULATING FACTOR (GRANULOCYTE COLONY STIMULATING [Concomitant]

REACTIONS (4)
  - BONE MARROW FAILURE [None]
  - MULTI-ORGAN FAILURE [None]
  - COUGH [None]
  - ASPERGILLOSIS [None]
